FAERS Safety Report 5947758-8 (Version None)
Quarter: 2008Q4

REPORT INFORMATION
  Report Type: 
  Country: None (occurrence: None)
  Receive Date: 20081111
  Receipt Date: 20081104
  Transmission Date: 20090506
  Serious: Yes (Hospitalization)
  Sender: FDA-Public Use
  Company Number: US-JNJFOC-20081101468

PATIENT
  Sex: Female
  Weight: 57.61 kg

DRUGS (4)
  1. DURAGESIC-100 [Suspect]
     Indication: RHEUMATOID ARTHRITIS
     Route: 062
  2. UNKNOWN DRUG [Suspect]
     Indication: RHEUMATOID ARTHRITIS
     Route: 065
  3. METHOTREXATE [Concomitant]
     Indication: RHEUMATOID ARTHRITIS
     Route: 050
  4. ENBREL [Concomitant]
     Indication: RHEUMATOID ARTHRITIS
     Route: 050

REACTIONS (4)
  - DEEP VEIN THROMBOSIS [None]
  - GUILLAIN-BARRE SYNDROME [None]
  - INTESTINAL PERFORATION [None]
  - METHICILLIN-RESISTANT STAPHYLOCOCCAL AUREUS TEST [None]
